FAERS Safety Report 17494687 (Version 4)
Quarter: 2020Q2

REPORT INFORMATION
  Report Type: Spontaneous
  Country: CZ (occurrence: CZ)
  Receive Date: 20200304
  Receipt Date: 20200624
  Transmission Date: 20200713
  Serious: Yes (Life-Threatening, Hospitalization, Other)
  Sender: FDA-Public Use
  Company Number: CZ-BRISTOL-MYERS SQUIBB COMPANY-BMS-2020-018215

PATIENT
  Age: 68 Year
  Sex: Male
  Weight: 102 kg

DRUGS (8)
  1. HELICID [OMEPRAZOLE] [Concomitant]
     Active Substance: OMEPRAZOLE
     Indication: PRODUCT USED FOR UNKNOWN INDICATION
     Dosage: 20 MILLIGRAM; DOSAGE 1-0-0; TIME INTERVAL: 1 DAY
     Route: 048
  2. KALNORMIN [Concomitant]
     Active Substance: POTASSIUM CHLORIDE
     Indication: PRODUCT USED FOR UNKNOWN INDICATION
     Dosage: 1 DOSAGE FORM, Q12H; DOSAGE 1-0-1
     Route: 048
  3. NOVALGIN (METAMIZOLE SODIUM) [Concomitant]
     Active Substance: METAMIZOLE SODIUM
     Indication: PRODUCT USED FOR UNKNOWN INDICATION
     Dosage: 50 MILLIGRAM; WHEN PAIN, MAXIMUM 4 TIMES A DAY
     Route: 048
  4. NIVOLUMAB [Suspect]
     Active Substance: NIVOLUMAB
     Indication: MALIGNANT MELANOMA
     Dosage: 3 MILLIGRAM/KILOGRAM, Q2WK
     Route: 065
     Dates: start: 201901, end: 20190722
  5. DALACIN [CLINDAMYCIN HYDROCHLORIDE] [Concomitant]
     Active Substance: CLINDAMYCIN HYDROCHLORIDE
     Indication: PRODUCT USED FOR UNKNOWN INDICATION
     Dosage: 300 MILLIGRAM; TO THE END OF PACAGE
     Route: 065
  6. GOPTEN [Concomitant]
     Active Substance: TRANDOLAPRIL
     Indication: PRODUCT USED FOR UNKNOWN INDICATION
     Dosage: 4 MILLIGRAM; DOSAGE 1-0-0; TIME INTERVAL: 1 DAY
     Route: 048
  7. HYLAK FORTE [Concomitant]
     Indication: PRODUCT USED FOR UNKNOWN INDICATION
     Dosage: 2 MILLILITER; 3X2ML A DAY
     Route: 048
  8. IPILIMUMAB [Suspect]
     Active Substance: IPILIMUMAB
     Indication: METASTATIC MALIGNANT MELANOMA
     Dosage: 300 MILLIGRAM; TIME INTERVAL OF 3 WEEKS; DURATION OF DRUG ADMINISTRATION: 2 MONTHS; 4 CYCLES
     Route: 042
     Dates: start: 20190910, end: 20191112

REACTIONS (9)
  - Mental disorder [Unknown]
  - Infection [Unknown]
  - Off label use [Unknown]
  - Acute kidney injury [Unknown]
  - Dehydration [Unknown]
  - Malignant neoplasm progression [Unknown]
  - Encephalitis autoimmune [Recovered/Resolved]
  - Autoimmune nephritis [Recovering/Resolving]
  - Vertigo [Unknown]

NARRATIVE: CASE EVENT DATE: 20190703
